FAERS Safety Report 20438731 (Version 1)
Quarter: 2022Q1

REPORT INFORMATION
  Report Type: Spontaneous
  Country: US (occurrence: None)
  Receive Date: 20220203
  Receipt Date: 20220203
  Transmission Date: 20220423
  Serious: Yes (Hospitalization)
  Sender: FDA-Public Use
  Company Number: None

PATIENT
  Age: 71 Year
  Sex: Male
  Weight: 55.34 kg

DRUGS (5)
  1. SOTROVIMAB [Suspect]
     Active Substance: SOTROVIMAB
     Indication: COVID-19
     Dosage: FREQUENCY : ONCE;?
     Route: 042
     Dates: start: 20220128, end: 20220128
  2. ALBUTEROL [Concomitant]
     Active Substance: ALBUTEROL
     Dates: start: 20220101
  3. FISH OIL [Concomitant]
     Active Substance: FISH OIL
     Dates: start: 20220101
  4. LISINOPRIL [Concomitant]
     Active Substance: LISINOPRIL
     Dates: start: 20220101
  5. IBUPROFEN [Concomitant]
     Active Substance: IBUPROFEN
     Dates: start: 20220101

REACTIONS (1)
  - Hospitalisation [None]

NARRATIVE: CASE EVENT DATE: 20220131
